FAERS Safety Report 12127185 (Version 2)
Quarter: 2016Q1

REPORT INFORMATION
  Report Type: Spontaneous
  Country: US (occurrence: US)
  Receive Date: 20160229
  Receipt Date: 20160303
  Transmission Date: 20160526
  Serious: Yes (Other)
  Sender: FDA-Public Use
  Company Number: US-ABBVIE-16K-163-1547292-00

PATIENT
  Sex: Female

DRUGS (1)
  1. HUMIRA [Suspect]
     Active Substance: ADALIMUMAB
     Indication: PSORIASIS
     Route: 058
     Dates: start: 2010, end: 201511

REACTIONS (10)
  - Exposure during pregnancy [Unknown]
  - Constipation [Unknown]
  - Feeling abnormal [Unknown]
  - Drug intolerance [Unknown]
  - Abortion spontaneous [Unknown]
  - Fatigue [Unknown]
  - Foetal death [Unknown]
  - Psoriasis [Unknown]
  - Nausea [Unknown]
  - Skin plaque [Unknown]

NARRATIVE: CASE EVENT DATE: 2015
